FAERS Safety Report 5335402-2 (Version None)
Quarter: 2007Q2

REPORT INFORMATION
  Report Type: 
  Country: None (occurrence: None)
  Receive Date: 20070322
  Receipt Date: 20061121
  Transmission Date: 20071010
  Serious: No
  Sender: FDA-Public Use
  Company Number: 2006US002711

PATIENT
  Age: 76 Year
  Sex: Female

DRUGS (2)
  1. VESICARE [Suspect]
     Indication: HYPERTONIC BLADDER
     Dosage: 5 MG, ORAL
     Route: 048
     Dates: start: 20060101
  2. ASPIRIN [Suspect]

REACTIONS (5)
  - CONFUSIONAL STATE [None]
  - DRY MOUTH [None]
  - EUPHORIC MOOD [None]
  - LETHARGY [None]
  - MEMORY IMPAIRMENT [None]
